FAERS Safety Report 13367545 (Version 1)
Quarter: 2017Q1

REPORT INFORMATION
  Report Type: Spontaneous
  Country: US (occurrence: US)
  Receive Date: 20170324
  Receipt Date: 20170324
  Transmission Date: 20170429
  Serious: No
  Sender: FDA-Public Use
  Company Number: US-ELI_LILLY_AND_COMPANY-US201703004349

PATIENT
  Sex: Male

DRUGS (1)
  1. STRATTERA [Suspect]
     Active Substance: ATOMOXETINE HYDROCHLORIDE
     Indication: MAJOR DEPRESSION
     Dosage: 80 MG, QD
     Route: 065

REACTIONS (3)
  - Feeling abnormal [Unknown]
  - Headache [Unknown]
  - Nausea [Unknown]
